FAERS Safety Report 5088738-7 (Version None)
Quarter: 2006Q3

REPORT INFORMATION
  Report Type: 
  Country: None (occurrence: None)
  Receive Date: 20060825
  Receipt Date: 20060620
  Transmission Date: 20061208
  Serious: Yes (Hospitalization, Other)
  Sender: FDA-Public Use
  Company Number: FR-GLAXOSMITHKLINE-B0428329A

PATIENT
  Age: 58 Year
  Sex: Male

DRUGS (2)
  1. MALARONE [Suspect]
     Indication: MALARIA PROPHYLAXIS
     Dosage: 1TAB PER DAY
     Route: 048
     Dates: start: 20051231, end: 20060115
  2. QUINOLONE [Suspect]
     Indication: SINUSITIS
     Route: 048
     Dates: start: 20060101, end: 20060201

REACTIONS (9)
  - ASTHENIA [None]
  - HEPATIC FIBROSIS [None]
  - HEPATIC FUNCTION ABNORMAL [None]
  - JAUNDICE [None]
  - LIVER FUNCTION TEST ABNORMAL [None]
  - OBESITY [None]
  - PULMONARY FIBROSIS [None]
  - RENAL FAILURE [None]
  - RESPIRATORY FAILURE [None]
